FAERS Safety Report 5053387-3 (Version None)
Quarter: 2006Q3

REPORT INFORMATION
  Report Type: 
  Country: None (occurrence: None)
  Receive Date: 20060718
  Receipt Date: 20060206
  Transmission Date: 20061208
  Serious: Yes (Hospitalization, Other)
  Sender: FDA-Public Use
  Company Number: PHNU2006DE00843

PATIENT
  Age: 50 Year
  Sex: Female

DRUGS (6)
  1. XELODA [Concomitant]
     Dosage: 1700 MG, BID FOR 2 WEEKS
     Route: 048
     Dates: start: 20051101
  2. VINORELBINE [Concomitant]
     Dosage: 42 MG, QW
     Dates: start: 20051101
  3. MEGESTROL ACETATE [Concomitant]
     Route: 065
     Dates: end: 20050801
  4. NSAID'S [Suspect]
     Route: 065
  5. ZOMETA [Suspect]
     Indication: METASTASES TO BONE
     Dosage: 4 MG, QMO
     Route: 042
     Dates: start: 20020101
  6. AREDIA [Suspect]
     Indication: METASTASES TO BONE
     Dosage: UNK, UNK
     Route: 042
     Dates: start: 19950101, end: 20010101

REACTIONS (27)
  - ACTINOMYCOSIS [None]
  - ANAESTHESIA [None]
  - BIOPSY SITE UNSPECIFIED ABNORMAL [None]
  - BIOPSY SKIN [None]
  - BONE DISORDER [None]
  - COMPUTERISED TOMOGRAM ABNORMAL [None]
  - DENTAL TREATMENT [None]
  - GASTRIC ULCER [None]
  - GASTROINTESTINAL HAEMORRHAGE [None]
  - GINGIVAL ULCERATION [None]
  - HAEMOGLOBIN DECREASED [None]
  - HYPOAESTHESIA [None]
  - IMPAIRED HEALING [None]
  - INTUBATION [None]
  - MYELOFIBROSIS [None]
  - OESOPHAGOGASTRODUODENOSCOPY [None]
  - ORAL SURGERY [None]
  - OSTEOMYELITIS [None]
  - OSTEOMYELITIS CHRONIC [None]
  - OSTEONECROSIS [None]
  - OSTEOSCLEROSIS [None]
  - PAIN IN JAW [None]
  - PRIMARY SEQUESTRUM [None]
  - SCINTIGRAPHY [None]
  - SEQUESTRECTOMY [None]
  - TOOTH EXTRACTION [None]
  - WOUND DEBRIDEMENT [None]
